FAERS Safety Report 9724859 (Version 1)
Quarter: 2013Q4

REPORT INFORMATION
  Report Type: Spontaneous
  Country: US (occurrence: US)
  Receive Date: 20131202
  Receipt Date: 20131202
  Transmission Date: 20140711
  Serious: Yes (Other)
  Sender: FDA-Public Use
  Company Number: US-ENDO PHARMACEUTICALS INC.-OXYC20120028

PATIENT
  Sex: Male
  Weight: 131.66 kg

DRUGS (2)
  1. OXYCODONE HCL 30MG [Suspect]
     Indication: NERVE INJURY
     Route: 048
     Dates: start: 2012
  2. OPANA ER 40MG [Concomitant]
     Indication: NERVE INJURY
     Route: 048
     Dates: end: 2012

REACTIONS (1)
  - Intentional drug misuse [Unknown]
